FAERS Safety Report 13281170 (Version 1)
Quarter: 2017Q1

REPORT INFORMATION
  Report Type: Spontaneous
  Country: FI (occurrence: FI)
  Receive Date: 20170301
  Receipt Date: 20170301
  Transmission Date: 20170428
  Serious: Yes (Other)
  Sender: FDA-Public Use
  Company Number: FI-ROCHE-1897499

PATIENT
  Sex: Male

DRUGS (8)
  1. TREXAN (FINLAND) [Suspect]
     Active Substance: METHOTREXATE
     Indication: RHEUMATOID ARTHRITIS
     Route: 065
     Dates: start: 201304, end: 201310
  2. CORTISONE [Concomitant]
     Active Substance: CORTISONE\HYDROCORTISONE
     Indication: RHEUMATOID ARTHRITIS
     Route: 065
  3. OXIKLORIN [Concomitant]
     Active Substance: HYDROXYCHLOROQUINE SULFATE
     Indication: RHEUMATOID ARTHRITIS
     Route: 065
     Dates: start: 201306
  4. TREXAN (FINLAND) [Suspect]
     Active Substance: METHOTREXATE
     Route: 065
     Dates: start: 201310, end: 201409
  5. HUMIRA [Concomitant]
     Active Substance: ADALIMUMAB
     Indication: RHEUMATOID ARTHRITIS
     Route: 065
     Dates: start: 201308, end: 201310
  6. ROACTEMRA [Suspect]
     Active Substance: TOCILIZUMAB
     Indication: RHEUMATOID ARTHRITIS
     Route: 042
     Dates: start: 201310
  7. CORTISONE [Concomitant]
     Active Substance: CORTISONE\HYDROCORTISONE
     Dosage: SYSTEMIC HIGH-DOSE CORTISONE
     Route: 065
  8. TREXAN (FINLAND) [Suspect]
     Active Substance: METHOTREXATE
     Route: 065
     Dates: start: 2016, end: 2016

REACTIONS (4)
  - IgA nephropathy [Unknown]
  - Rash [Recovered/Resolved]
  - Petechiae [Unknown]
  - Liver function test increased [Unknown]

NARRATIVE: CASE EVENT DATE: 2014
